FAERS Safety Report 8552176 (Version 6)
Quarter: 2013Q3

REPORT INFORMATION
  Report Type: Spontaneous
  Country: US (occurrence: US)
  Receive Date: 20120508
  Receipt Date: 20130905
  Transmission Date: 20140515
  Serious: Yes (Death, Life-Threatening, Hospitalization, Other)
  Sender: FDA-Public Use
  Company Number: US-GLAXOSMITHKLINE-A0965542A

PATIENT
  Age: 69 Year
  Sex: Female
  Weight: 61.4 kg

DRUGS (9)
  1. FLOLAN [Suspect]
     Indication: PULMONARY ARTERIAL HYPERTENSION
     Dosage: 36NGKM CONTINUOUS
     Route: 042
     Dates: start: 200912
  2. BOSENTAN [Suspect]
     Indication: PRODUCT USED FOR UNKNOWN INDICATION
     Route: 065
  3. LASIX [Suspect]
     Indication: PRODUCT USED FOR UNKNOWN INDICATION
     Route: 065
  4. COUMADIN [Concomitant]
  5. TRACLEER [Concomitant]
  6. DIGOXIN [Concomitant]
  7. WARFARIN [Concomitant]
  8. OMEPRAZOLE [Concomitant]
  9. UNSPECIFIED MEDICATION [Concomitant]

REACTIONS (8)
  - Interstitial lung disease [Fatal]
  - Pneumonia [Recovered/Resolved]
  - Epistaxis [Recovered/Resolved]
  - Abdominal pain [Recovered/Resolved]
  - Irritable bowel syndrome [Recovered/Resolved]
  - Headache [Unknown]
  - Pulmonary hypertension [Fatal]
  - Chronic respiratory failure [Fatal]
